FAERS Safety Report 5789493-5 (Version None)
Quarter: 2008Q2

REPORT INFORMATION
  Report Type: 
  Country: None (occurrence: None)
  Receive Date: 20080626
  Receipt Date: 20080616
  Transmission Date: 20081010
  Serious: Yes (Other)
  Sender: FDA-Public Use
  Company Number: JP-ROCHE-570793

PATIENT
  Sex: Male

DRUGS (1)
  1. ROCEPHIN [Suspect]
     Indication: CHOLANGITIS
     Route: 041
     Dates: start: 20080602, end: 20080611

REACTIONS (1)
  - PANCREATITIS [None]
